FAERS Safety Report 9895212 (Version 1)
Quarter: 2014Q1

REPORT INFORMATION
  Report Type: Spontaneous
  Country: US (occurrence: US)
  Receive Date: 20140213
  Receipt Date: 20140213
  Transmission Date: 20141002
  Serious: No
  Sender: FDA-Public Use
  Company Number: US-BRISTOL-MYERS SQUIBB COMPANY-19348226

PATIENT
  Age: 47 Year
  Sex: Female
  Weight: 86.17 kg

DRUGS (4)
  1. ORENCIA FOR INJ [Suspect]
     Indication: UNDIFFERENTIATED CONNECTIVE TISSUE DISEASE
     Dosage: LAST INFUSION 05AUG2013
     Route: 042
     Dates: start: 201303
  2. ORENCIA FOR INJ [Suspect]
     Indication: RHEUMATOID ARTHRITIS
     Dosage: LAST INFUSION 05AUG2013
     Route: 042
     Dates: start: 201303
  3. BENADRYL [Concomitant]
     Indication: IMPAIRED GASTRIC EMPTYING
  4. LYRICA [Concomitant]

REACTIONS (4)
  - Urticaria [Unknown]
  - Dyspnoea [Unknown]
  - Cough [Unknown]
  - Impaired gastric emptying [Unknown]
